FAERS Safety Report 8137878-4 (Version None)
Quarter: 2012Q1

REPORT INFORMATION
  Report Type: 
  Country: None (occurrence: None)
  Receive Date: 20120215
  Receipt Date: 20120208
  Transmission Date: 20120608
  Serious: Yes (Hospitalization)
  Sender: FDA-Public Use
  Company Number: US-BAYER-2010-001666

PATIENT
  Age: 26 Year
  Sex: Female
  Weight: 77.098 kg

DRUGS (2)
  1. YAZ [Suspect]
     Dosage: UNK
     Dates: start: 20080101, end: 20090701
  2. ACETAMINOPHEN [Concomitant]
     Indication: PAIN
     Dosage: UNK UNK, Q4HR

REACTIONS (2)
  - GALLBLADDER DISORDER [None]
  - BILIARY COLIC [None]
